FAERS Safety Report 15622457 (Version 1)
Quarter: 2018Q4

REPORT INFORMATION
  Report Type: Spontaneous
  Country: GB (occurrence: ES)
  Receive Date: 20181115
  Receipt Date: 20181115
  Transmission Date: 20190205
  Serious: Yes (Life-Threatening)
  Sender: FDA-Public Use
  Company Number: ES-FRESENIUS KABI-FK201811612

PATIENT
  Age: 60 Year
  Sex: Female
  Weight: 78 kg

DRUGS (2)
  1. PACLITAXEL (MANUFACTURER UNKNOWN) [Suspect]
     Active Substance: PACLITAXEL
     Indication: NEOADJUVANT THERAPY
     Route: 042
     Dates: start: 20171228, end: 20171228
  2. CARBOPLATIN. [Concomitant]
     Active Substance: CARBOPLATIN
     Indication: NEOADJUVANT THERAPY
     Route: 042
     Dates: start: 20171228, end: 20171228

REACTIONS (1)
  - Anaphylactic shock [Recovered/Resolved]

NARRATIVE: CASE EVENT DATE: 20171228
